FAERS Safety Report 5341229-8 (Version None)
Quarter: 2007Q2

REPORT INFORMATION
  Report Type: 
  Country: None (occurrence: None)
  Receive Date: 20070530
  Receipt Date: 20070515
  Transmission Date: 20071010
  Serious: Yes (Other)
  Sender: FDA-Public Use
  Company Number: T200700559

PATIENT
  Age: 52 Year
  Sex: Female

DRUGS (7)
  1. METHADOSE [Suspect]
     Indication: DRUG DEPENDENCE
     Dosage: SEE IMAGE
     Route: 048
  2. ACYCLOVIR /00587301/ (ACICLOVIR) [Concomitant]
  3. ZIDOVUDINE [Concomitant]
  4. LAMIVUDINE [Concomitant]
  5. AMOXICILLIN [Concomitant]
  6. RANITIDINE [Concomitant]
  7. ALPRAZOLAM [Concomitant]

REACTIONS (22)
  - ALPHA HAEMOLYTIC STREPTOCOCCAL INFECTION [None]
  - BLOOD CULTURE POSITIVE [None]
  - BLOOD MAGNESIUM DECREASED [None]
  - BLOOD PHOSPHORUS DECREASED [None]
  - BLOOD POTASSIUM DECREASED [None]
  - DIZZINESS [None]
  - DRUG ABUSER [None]
  - DRUG SCREEN POSITIVE [None]
  - EJECTION FRACTION DECREASED [None]
  - HAEMATOCRIT DECREASED [None]
  - HAEMOGLOBIN DECREASED [None]
  - HEADACHE [None]
  - LEFT VENTRICULAR DYSFUNCTION [None]
  - MITRAL VALVE INCOMPETENCE [None]
  - NAUSEA [None]
  - PULSE ABSENT [None]
  - PYREXIA [None]
  - SYNCOPE [None]
  - TORSADE DE POINTES [None]
  - TRICUSPID VALVE INCOMPETENCE [None]
  - VENTRICULAR EXTRASYSTOLES [None]
  - VENTRICULAR TACHYCARDIA [None]
